FAERS Safety Report 25128577 (Version 1)
Quarter: 2025Q1

REPORT INFORMATION
  Report Type: Spontaneous
  Country: US (occurrence: None)
  Receive Date: 20250326
  Receipt Date: 20250326
  Transmission Date: 20250408
  Serious: No
  Sender: FDA-CTU
  Company Number: None

PATIENT
  Age: 87 Year
  Sex: Female
  Weight: 48.5 kg

DRUGS (1)
  1. PAZOPANIB [Suspect]
     Active Substance: PAZOPANIB
     Indication: Hereditary haemorrhagic telangiectasia
     Dosage: FREQUENCY : DAILY;?
     Route: 002
     Dates: start: 20250122, end: 20250129

REACTIONS (2)
  - Fatigue [None]
  - Epistaxis [None]

NARRATIVE: CASE EVENT DATE: 20250129
